FAERS Safety Report 4926150-9 (Version None)
Quarter: 2006Q1

REPORT INFORMATION
  Report Type: 
  Country: None (occurrence: None)
  Receive Date: 20060228
  Receipt Date: 20050829
  Transmission Date: 20060701
  Serious: No
  Sender: FDA-Public Use
  Company Number: US-GLAXOSMITHKLINE-A0572211A

PATIENT
  Sex: Female

DRUGS (3)
  1. LAMICTAL [Suspect]
     Indication: EPILEPSY
     Route: 048
     Dates: end: 20050101
  2. TRILEPTAL [Suspect]
     Dosage: 150MG TWICE PER DAY
     Route: 048
     Dates: end: 20050101
  3. NO CONCURRENT MEDICATION [Concomitant]

REACTIONS (4)
  - ARTHROPATHY [None]
  - GINGIVAL SWELLING [None]
  - MIGRAINE [None]
  - NECK PAIN [None]
